FAERS Safety Report 7174206-5 (Version None)
Quarter: 2010Q4

REPORT INFORMATION
  Report Type: 
  Country: None (occurrence: None)
  Receive Date: 20101215
  Receipt Date: 20101215
  Transmission Date: 20110411
  Serious: Yes (Other)
  Sender: FDA-Public Use
  Company Number: None

PATIENT
  Sex: Female
  Weight: 79.3795 kg

DRUGS (2)
  1. ENABLEX [Suspect]
     Dosage: 15 MG 1/DA
     Dates: start: 20101008
  2. ENABLEX [Suspect]
     Dosage: 15 MG 1/DA
     Dates: start: 20101009

REACTIONS (2)
  - HEAT EXHAUSTION [None]
  - MALAISE [None]
